FAERS Safety Report 8388364-8 (Version None)
Quarter: 2012Q2

REPORT INFORMATION
  Report Type: 
  Country: None (occurrence: None)
  Receive Date: 20120525
  Receipt Date: 20120523
  Transmission Date: 20120825
  Serious: Yes (Hospitalization)
  Sender: FDA-Public Use
  Company Number: US-PFIZER INC-2012125530

PATIENT
  Sex: Male
  Weight: 97.959 kg

DRUGS (8)
  1. LISINOPRIL [Concomitant]
     Indication: HYPERTENSION
     Dosage: 40 MG
  2. HYDROXYZINE [Concomitant]
     Dosage: UNK
  3. METHADONE [Concomitant]
     Indication: PAIN
     Dosage: UNK
  4. GLUCAGON [Concomitant]
     Dosage: UNK
  5. XANAX [Suspect]
     Indication: PANIC DISORDER
     Dosage: UNK, 1X/DAY
     Route: 048
     Dates: start: 20111201, end: 20111201
  6. LOVASTATIN [Concomitant]
     Dosage: UNK
  7. LEVOTHYROXINE [Concomitant]
     Indication: THYROID DISORDER
     Dosage: UNK
  8. PAXIL [Concomitant]
     Dosage: UNK

REACTIONS (1)
  - HYPERSENSITIVITY [None]
